FAERS Safety Report 24954831 (Version 1)
Quarter: 2025Q1

REPORT INFORMATION
  Report Type: Spontaneous
  Country: US (occurrence: US)
  Receive Date: 20250211
  Receipt Date: 20250211
  Transmission Date: 20250408
  Serious: No
  Sender: Haleon PLC
  Company Number: US-HALEON-2227231

PATIENT
  Sex: Female

DRUGS (2)
  1. SENSODYNE PRONAMEL INTENSIVE ENAMEL REPAIR WHITENING [Suspect]
     Active Substance: POTASSIUM NITRATE\SODIUM FLUORIDE
     Indication: Dental disorder prophylaxis
  2. SENSODYNE PRONAMEL INTENSIVE ENAMEL REPAIR WHITENING [Suspect]
     Active Substance: POTASSIUM NITRATE\SODIUM FLUORIDE

REACTIONS (2)
  - Gingival pain [Unknown]
  - Drug ineffective [Unknown]
